FAERS Safety Report 7412555-3 (Version None)
Quarter: 2011Q2

REPORT INFORMATION
  Report Type: 
  Country: None (occurrence: None)
  Receive Date: 20110408
  Receipt Date: 20110408
  Transmission Date: 20111010
  Serious: No
  Sender: FDA-Public Use
  Company Number: None

PATIENT
  Age: 30 Year
  Sex: Male
  Weight: 74.8435 kg

DRUGS (1)
  1. RISPERDAL [Suspect]
     Indication: SCHIZOPHRENIA
     Dosage: 2 MG DAY PO
     Route: 048
     Dates: start: 20100805, end: 20101005

REACTIONS (2)
  - HYPERPROLACTINAEMIA [None]
  - INFERTILITY [None]
